FAERS Safety Report 8715554 (Version 10)
Quarter: 2014Q2

REPORT INFORMATION
  Report Type: Spontaneous
  Country: CA (occurrence: CA)
  Receive Date: 20120809
  Receipt Date: 20140414
  Transmission Date: 20141212
  Serious: Yes (Other)
  Sender: FDA-Public Use
  Company Number: CA-ROCHE-1097669

PATIENT
  Age: 61 Year
  Sex: Male
  Weight: 61.4 kg

DRUGS (12)
  1. XOLAIR [Suspect]
     Indication: ASTHMA
     Route: 058
     Dates: start: 20110225
  2. XOLAIR [Suspect]
     Route: 058
     Dates: start: 20130416
  3. XOLAIR [Suspect]
     Route: 058
     Dates: start: 20131030
  4. XOLAIR [Suspect]
     Route: 058
     Dates: start: 20131127
  5. XOLAIR [Suspect]
     Route: 058
     Dates: start: 20140120
  6. XOLAIR [Suspect]
     Route: 058
     Dates: start: 20140224
  7. SYMBICORT [Concomitant]
     Dosage: 8 PUFFS A DAY
     Route: 065
  8. SYMBICORT [Concomitant]
     Dosage: 2 PUFFS
     Route: 065
  9. VENTOLIN [Concomitant]
     Dosage: 2 PUFFS 4 TIMES A DAY
     Route: 065
  10. SINGULAIR [Concomitant]
  11. ATROVENT [Concomitant]
     Dosage: 4-6 TIMES DAILY
     Route: 065
  12. ZENHALE [Concomitant]
     Route: 065

REACTIONS (7)
  - Pneumonia [Unknown]
  - Respiratory tract infection [Recovered/Resolved]
  - Asthma [Unknown]
  - Spinal pain [Unknown]
  - Hypopnoea [Unknown]
  - Peak expiratory flow rate decreased [Recovered/Resolved]
  - Weight decreased [Unknown]
